FAERS Safety Report 21033985 (Version 1)
Quarter: 2022Q3

REPORT INFORMATION
  Report Type: Spontaneous
  Country: US (occurrence: US)
  Receive Date: 20220701
  Receipt Date: 20220701
  Transmission Date: 20221027
  Serious: Yes (Death)
  Sender: FDA-Public Use
  Company Number: US-MYLANLABS-2022M1048709

PATIENT

DRUGS (1)
  1. SORAFENIB [Suspect]
     Active Substance: SORAFENIB
     Indication: Neoplasm malignant
     Dosage: UNK
     Route: 065

REACTIONS (2)
  - Aneurysm [Fatal]
  - Artery dissection [Fatal]
